FAERS Safety Report 8017707-X (Version None)
Quarter: 2012Q1

REPORT INFORMATION
  Report Type: 
  Country: None (occurrence: None)
  Receive Date: 20120103
  Receipt Date: 20111227
  Transmission Date: 20120608
  Serious: No
  Sender: FDA-Public Use
  Company Number: US-PFIZER INC-2011314369

PATIENT
  Sex: Male

DRUGS (1)
  1. XALATAN [Suspect]
     Dosage: UNK

REACTIONS (5)
  - THROAT IRRITATION [None]
  - DYSGEUSIA [None]
  - GLOSSODYNIA [None]
  - BURNING SENSATION [None]
  - ORAL DISCOMFORT [None]
